FAERS Safety Report 12742138 (Version 3)
Quarter: 2016Q4

REPORT INFORMATION
  Report Type: Spontaneous
  Country: PL (occurrence: PL)
  Receive Date: 20160914
  Receipt Date: 20161010
  Transmission Date: 20170207
  Serious: Yes (Other)
  Sender: FDA-Public Use
  Company Number: PL-PFIZER INC-2016381011

PATIENT
  Age: 20 Year
  Sex: Male
  Weight: 50 kg

DRUGS (1)
  1. LYRICA [Suspect]
     Active Substance: PREGABALIN
     Dosage: UNK

REACTIONS (4)
  - Refusal of treatment by patient [Unknown]
  - Product physical issue [Unknown]
  - Haematemesis [Not Recovered/Not Resolved]
  - Food aversion [Not Recovered/Not Resolved]
